FAERS Safety Report 16747521 (Version 1)
Quarter: 2019Q3

REPORT INFORMATION
  Report Type: Report from Study
  Country: TW (occurrence: TW)
  Receive Date: 20190827
  Receipt Date: 20190827
  Transmission Date: 20191005
  Serious: Yes (Hospitalization)
  Sender: FDA-Public Use
  Company Number: TW-AMGEN-TWNCT2018058049

PATIENT
  Age: 56 Year
  Sex: Male
  Weight: 54.3 kg

DRUGS (31)
  1. ZOLEDRONIC ACID [Concomitant]
     Active Substance: ZOLEDRONIC ACID
     Dosage: 3-4 MILLIGRAM, UNK
     Dates: start: 20180214, end: 20180411
  2. RANITIDINE. [Concomitant]
     Active Substance: RANITIDINE
     Dosage: 150 MILLIGRAM
     Dates: start: 20180223, end: 20180913
  3. ACETYLCYSTEINE. [Concomitant]
     Active Substance: ACETYLCYSTEINE
     Dosage: 66.7 MILLIGRAM
     Dates: start: 20180223, end: 20180306
  4. BERODUAL METERED-DOSE INHALER [Concomitant]
     Dosage: 200 UNK, UNK
     Dates: start: 20180425, end: 20180516
  5. VALACICLOVIR [Concomitant]
     Active Substance: VALACYCLOVIR HYDROCHLORIDE
     Dosage: 500 MILLIGRAM
     Dates: start: 20180213
  6. PANTOPRAZOLE [Concomitant]
     Active Substance: PANTOPRAZOLE
     Dosage: 40 MILLIGRAM
     Dates: start: 20171113, end: 20180222
  7. SCOPOLAMINE BUTYLBROMIDE [Concomitant]
     Active Substance: SCOPOLAMINE
     Dosage: 20 MILLIGRAM
     Dates: start: 20180305, end: 20180306
  8. OXYCODONE [Concomitant]
     Active Substance: OXYCODONE
     Dosage: 5 TO 10 MILLIGRAM, UNK
     Dates: start: 20170710, end: 20180829
  9. MOSAPRIDE [Concomitant]
     Active Substance: MOSAPRIDE
     Dosage: 5 MILLIGRAM
     Dates: start: 20171113, end: 20180130
  10. ACETAMINOPHEN. [Concomitant]
     Active Substance: ACETAMINOPHEN
     Dosage: 750-1000 MILLIGRAM, UNK
     Route: 048
     Dates: start: 20180213
  11. ETOFENAMATE [Concomitant]
     Active Substance: ETOFENAMATE
     Dosage: 5 UNK, UNK
     Dates: start: 20180223, end: 20180614
  12. CHLORPHENIRAMINE. [Concomitant]
     Active Substance: CHLORPHENIRAMINE
     Dosage: 5 MILLIGRAM
     Route: 042
     Dates: start: 20180213
  13. NORMAL SALINE [Concomitant]
     Active Substance: SODIUM CHLORIDE
     Dosage: 250 MILLILITER
     Route: 042
     Dates: start: 20180223
  14. FUROSEMIDE. [Concomitant]
     Active Substance: FUROSEMIDE
     Dosage: 10 MILLIGRAM
     Dates: start: 20180320, end: 20180321
  15. PLATELETS [Concomitant]
     Active Substance: HUMAN PLATELET, ALLOGENIC
     Dosage: 1 UNK, UNK
     Dates: start: 20180223, end: 20180301
  16. ACYCLOVIR. [Concomitant]
     Active Substance: ACYCLOVIR
     Dosage: 5 UNK, UNK
     Dates: start: 20180126, end: 20180223
  17. PROCHLORPERAZINE. [Concomitant]
     Active Substance: PROCHLORPERAZINE
     Dosage: 5 MILLIGRAM
     Dates: start: 20180305, end: 20180308
  18. SMECTITE [Concomitant]
     Active Substance: MONTMORILLONITE
     Dosage: 3-6 GRAM, UNK
     Dates: start: 20180305, end: 20180316
  19. TRIAMCINOLONE [Concomitant]
     Active Substance: TRIAMCINOLONE
     Dosage: 0.1 UNK
     Dates: start: 20180428, end: 20180501
  20. CARFILZOMIB [Suspect]
     Active Substance: CARFILZOMIB
     Indication: PLASMA CELL MYELOMA
     Dosage: 84 MILLIGRAM, PER CHEMO REGIM
     Route: 042
     Dates: start: 20180213
  21. DARATUMUMAB [Suspect]
     Active Substance: DARATUMUMAB
     Indication: PLASMA CELL MYELOMA
     Dosage: 864 MILLIGRAM, PER CHEMO REGIM
     Route: 042
     Dates: start: 20180213
  22. DEXAMETHASONE. [Concomitant]
     Active Substance: DEXAMETHASONE
     Indication: PLASMA CELL MYELOMA
     Dosage: 20 MILLIGRAM
     Route: 048
     Dates: start: 20180213
  23. LOPERAMIDE [Concomitant]
     Active Substance: LOPERAMIDE
     Dosage: 2 MG, UNK
     Dates: start: 20171225, end: 20180130
  24. COMBIVENT [Concomitant]
     Active Substance: ALBUTEROL SULFATE\IPRATROPIUM BROMIDE
     Dosage: 2.5 UNK, UNK
     Dates: start: 20180410, end: 20180830
  25. PROCATEROL [Concomitant]
     Active Substance: PROCATEROL HYDROCHLORIDE
     Dosage: 25 MILLIGRAM
     Dates: start: 20180411
  26. CARFILZOMIB [Suspect]
     Active Substance: CARFILZOMIB
     Dosage: DOSE REDUCED, UNK
     Route: 042
  27. MONTELUKAST [Concomitant]
     Active Substance: MONTELUKAST SODIUM
     Dosage: 10 MILLIGRAM
     Route: 048
     Dates: start: 20180213
  28. NORMAL SALINE [Concomitant]
     Active Substance: SODIUM CHLORIDE
  29. HYDROCORTISONE. [Concomitant]
     Active Substance: HYDROCORTISONE
     Dosage: 100-300 MILLIGRAM, UNK
     Dates: start: 20180301, end: 20180430
  30. TRAMADOL. [Concomitant]
     Active Substance: TRAMADOL
     Dosage: 100 MILLIGRAM
     Dates: start: 20180305, end: 20180306
  31. RED BLOOD CELLS, CONCENTRATED [Concomitant]
     Active Substance: HUMAN RED BLOOD CELL
     Dosage: 2 UNK, UNK
     Dates: start: 20180213, end: 20180430

REACTIONS (1)
  - Chronic obstructive pulmonary disease [Recovered/Resolved]

NARRATIVE: CASE EVENT DATE: 20180427
